FAERS Safety Report 6440602-4 (Version None)
Quarter: 2009Q4

REPORT INFORMATION
  Report Type: 
  Country: None (occurrence: None)
  Receive Date: 20091113
  Receipt Date: 20091103
  Transmission Date: 20100525
  Serious: Yes (Death, Other)
  Sender: FDA-Public Use
  Company Number: GR-GENENTECH-293314

PATIENT

DRUGS (3)
  1. BEVACIZUMAB [Suspect]
     Indication: COLORECTAL CANCER METASTATIC
     Dosage: 5 MG/KG, UNK
     Route: 065
  2. CAPECITABINE [Suspect]
     Indication: COLORECTAL CANCER METASTATIC
     Dosage: 1500 MG/M2, Q2W
     Route: 065
  3. OXALIPLATIN [Suspect]
     Indication: COLORECTAL CANCER METASTATIC
     Dosage: 85 MG/M2, Q2W
     Route: 065

REACTIONS (8)
  - DIARRHOEA [None]
  - FATIGUE [None]
  - HYPERSENSITIVITY [None]
  - INTESTINAL PERFORATION [None]
  - NEOPLASM MALIGNANT [None]
  - NEUROTOXICITY [None]
  - NEUTROPENIA [None]
  - SUDDEN DEATH [None]
